FAERS Safety Report 12350289 (Version 4)
Quarter: 2016Q2

REPORT INFORMATION
  Report Type: Spontaneous
  Country: US (occurrence: US)
  Receive Date: 20160510
  Receipt Date: 20160607
  Transmission Date: 20160815
  Serious: Yes (Hospitalization, Other)
  Sender: FDA-Public Use
  Company Number: US-GLAXOSMITHKLINE-US2016GSK058642

PATIENT
  Age: 88 Year
  Sex: Male

DRUGS (7)
  1. COREG CR [Suspect]
     Active Substance: CARVEDILOL PHOSPHATE
     Indication: HEART RATE IRREGULAR
     Dosage: UNK, QD
     Route: 048
  2. COREG CR [Suspect]
     Active Substance: CARVEDILOL PHOSPHATE
     Dosage: 20 MG, U
  3. ENTRESTO [Suspect]
     Active Substance: SACUBITRIL\VALSARTAN
     Indication: PRODUCT USED FOR UNKNOWN INDICATION
     Dosage: UNK
     Dates: start: 201512
  4. BRILINTA [Concomitant]
     Active Substance: TICAGRELOR
  5. LASIX [Concomitant]
     Active Substance: FUROSEMIDE
  6. PROCRIT [Concomitant]
     Active Substance: ERYTHROPOIETIN
  7. COUMADIN [Concomitant]
     Active Substance: WARFARIN SODIUM

REACTIONS (3)
  - Loss of consciousness [Recovered/Resolved]
  - Drug interaction [Unknown]
  - International normalised ratio abnormal [Unknown]

NARRATIVE: CASE EVENT DATE: 201603
